FAERS Safety Report 7874819-9 (Version None)
Quarter: 2011Q4

REPORT INFORMATION
  Report Type: 
  Country: None (occurrence: None)
  Receive Date: 20111031
  Receipt Date: 20111020
  Transmission Date: 20120403
  Serious: Yes (Other)
  Sender: FDA-Public Use
  Company Number: CA-JNJFOC-20111010254

PATIENT
  Sex: Male

DRUGS (2)
  1. REMICADE [Suspect]
     Indication: COLITIS ULCERATIVE
     Route: 042
     Dates: start: 20111007
  2. PREDNISONE [Concomitant]
     Route: 048

REACTIONS (7)
  - HYPERTENSION [None]
  - ABDOMINAL PAIN UPPER [None]
  - VISUAL IMPAIRMENT [None]
  - ANXIETY [None]
  - DIARRHOEA [None]
  - HAEMATOCHEZIA [None]
  - DIZZINESS [None]
